FAERS Safety Report 5821120-0 (Version None)
Quarter: 2008Q3

REPORT INFORMATION
  Report Type: 
  Country: None (occurrence: None)
  Receive Date: 20080724
  Receipt Date: 20080215
  Transmission Date: 20090109
  Serious: No
  Sender: FDA-Public Use
  Company Number: US-BAYER-200810697BCC

PATIENT
  Age: 15 Year
  Sex: Male
  Weight: 91 kg

DRUGS (3)
  1. ALEVE [Suspect]
     Indication: DRUG USE FOR UNKNOWN INDICATION
     Dosage: UNIT DOSE: 220 MG
     Route: 048
     Dates: start: 20080214
  2. CELEXA [Concomitant]
  3. DAYTRANA [Concomitant]

REACTIONS (1)
  - ABDOMINAL PAIN UPPER [None]
